FAERS Safety Report 6397952-X (Version None)
Quarter: 2009Q4

REPORT INFORMATION
  Report Type: 
  Country: None (occurrence: None)
  Receive Date: 20091013
  Receipt Date: 20091005
  Transmission Date: 20100525
  Serious: Yes (Other)
  Sender: FDA-Public Use
  Company Number: US-JNJFOC-20091001747

PATIENT
  Sex: Female
  Weight: 95.26 kg

DRUGS (4)
  1. FENTANYL TRANSDERMAL SYSTEM [Suspect]
     Route: 062
  2. FENTANYL TRANSDERMAL SYSTEM [Suspect]
     Indication: PAIN
     Route: 062
  3. OXYCODONE [Concomitant]
     Indication: BREAKTHROUGH PAIN
     Dosage: OR EVERY 6 HOURS
     Route: 048
  4. LEXAPRO [Concomitant]
     Indication: DEPRESSION
     Route: 048

REACTIONS (4)
  - ARTHRITIS [None]
  - INTERVERTEBRAL DISC DEGENERATION [None]
  - PARAESTHESIA [None]
  - VISUAL ACUITY REDUCED [None]
